FAERS Safety Report 19560600 (Version 1)
Quarter: 2021Q3

REPORT INFORMATION
  Report Type: Spontaneous
  Country: US (occurrence: US)
  Receive Date: 20210715
  Receipt Date: 20210715
  Transmission Date: 20211014
  Serious: No
  Sender: FDA-Public Use
  Company Number: US-ASTRAZENECA-2021A604855

PATIENT

DRUGS (1)
  1. DALIRESP [Suspect]
     Active Substance: ROFLUMILAST
     Route: 048

REACTIONS (4)
  - Diarrhoea [Unknown]
  - Headache [Unknown]
  - Fatigue [Unknown]
  - Nausea [Unknown]
